FAERS Safety Report 5460542-7 (Version None)
Quarter: 2007Q3

REPORT INFORMATION
  Report Type: 
  Country: None (occurrence: None)
  Receive Date: 20070919
  Receipt Date: 20070910
  Transmission Date: 20080115
  Serious: Yes (Other)
  Sender: FDA-Public Use
  Company Number: US-SANOFI-SYNTHELABO-A03200705501

PATIENT
  Sex: Female

DRUGS (14)
  1. SIMVASTATIN [Concomitant]
     Dosage: UNK
     Route: 065
  2. DEPAKOTE [Concomitant]
     Dosage: UNK
     Route: 065
     Dates: start: 19990101
  3. REGLAN [Concomitant]
     Dosage: UNK
     Route: 065
  4. COMPAZINE [Concomitant]
     Dosage: UNK
     Route: 065
  5. BENZODIAZEPINES [Concomitant]
     Dosage: UNK
     Route: 065
  6. EMSAM [Concomitant]
     Dosage: UNK
     Route: 065
     Dates: start: 20060901
  7. AMBIEN [Suspect]
     Indication: INSOMNIA
     Route: 048
     Dates: start: 20061201, end: 20070401
  8. AMBIEN [Suspect]
     Route: 048
     Dates: start: 20070401, end: 20070401
  9. AMBIEN [Suspect]
     Route: 048
     Dates: start: 20070401, end: 20070722
  10. AMBIEN [Suspect]
     Route: 048
     Dates: start: 20070701, end: 20070801
  11. AMBIEN [Suspect]
     Route: 048
     Dates: start: 20070801, end: 20070801
  12. AMBIEN [Suspect]
     Route: 048
     Dates: start: 20070801, end: 20070801
  13. AMBIEN [Suspect]
     Route: 048
     Dates: start: 20070801, end: 20070822
  14. LOESTRIN [Concomitant]
     Dosage: UNK
     Route: 065

REACTIONS (14)
  - ABDOMINAL PAIN [None]
  - ABNORMAL BEHAVIOUR [None]
  - AMNESIA [None]
  - ANXIETY [None]
  - CONFUSIONAL STATE [None]
  - DISSOCIATION [None]
  - DIZZINESS [None]
  - DRUG WITHDRAWAL SYNDROME [None]
  - HEADACHE [None]
  - NAUSEA [None]
  - PANIC REACTION [None]
  - TREMOR [None]
  - VISION BLURRED [None]
  - VOMITING [None]
